FAERS Safety Report 8479102-9 (Version None)
Quarter: 2012Q2

REPORT INFORMATION
  Report Type: 
  Country: None (occurrence: None)
  Receive Date: 20120629
  Receipt Date: 20110513
  Transmission Date: 20120825
  Serious: Yes (Other)
  Sender: FDA-Public Use
  Company Number: PL-ROCHE-777338

PATIENT
  Sex: Male
  Weight: 82 kg

DRUGS (4)
  1. METHYLPREDNISOLONE [Suspect]
     Indication: RHEUMATOID ARTHRITIS
     Route: 048
  2. MABTHERA [Suspect]
     Indication: RHEUMATOID ARTHRITIS
     Dosage: DOSE AMOUNT:2 X 1000 MG, 2X 1000 MG EVERY SIX MONTHS
     Route: 042
  3. MABTHERA [Suspect]
     Dosage: REEMISSION (LOWERED DOSE)
     Route: 042
  4. METHOTREXATE [Suspect]
     Indication: RHEUMATOID ARTHRITIS
     Route: 048

REACTIONS (2)
  - TUBERCULOSIS [None]
  - GENERAL PHYSICAL HEALTH DETERIORATION [None]
